FAERS Safety Report 17608993 (Version 1)
Quarter: 2020Q2

REPORT INFORMATION
  Report Type: Spontaneous
  Country: GB (occurrence: GB)
  Receive Date: 20200401
  Receipt Date: 20200401
  Transmission Date: 20200713
  Serious: Yes (Other)
  Sender: FDA-Public Use
  Company Number: GB-TEVA-2020-GB-1214934

PATIENT
  Age: 34 Year
  Sex: Female
  Weight: 86 kg

DRUGS (7)
  1. OMEPRAZOLE. [Concomitant]
     Active Substance: OMEPRAZOLE
  2. DULOXETINE. [Suspect]
     Active Substance: DULOXETINE
     Indication: FIBROMYALGIA
     Dosage: STARTED ON DULOXETINE 60MG THEN INCREASED TO 90MG THEN 120MG
     Route: 048
     Dates: start: 20191111, end: 20200207
  3. HUMIRA [Concomitant]
     Active Substance: ADALIMUMAB
  4. OXYBUTYNIN HYDROCHLORIDE [Concomitant]
     Active Substance: OXYBUTYNIN CHLORIDE
  5. PROCHLORPERAZINE. [Concomitant]
     Active Substance: PROCHLORPERAZINE
  6. PARACETAMOL [Concomitant]
     Active Substance: ACETAMINOPHEN
  7. NAPROXEN. [Concomitant]
     Active Substance: NAPROXEN

REACTIONS (4)
  - Facial paresis [Recovered/Resolved with Sequelae]
  - Paraesthesia oral [Recovered/Resolved with Sequelae]
  - Dysarthria [Not Recovered/Not Resolved]
  - Drooling [Recovered/Resolved with Sequelae]

NARRATIVE: CASE EVENT DATE: 20200127
